FAERS Safety Report 7914087-2 (Version None)
Quarter: 2011Q4

REPORT INFORMATION
  Report Type: 
  Country: None (occurrence: None)
  Receive Date: 20111115
  Receipt Date: 20111110
  Transmission Date: 20120403
  Serious: Yes (Other)
  Sender: FDA-Public Use
  Company Number: US-PFIZER INC-2011276382

PATIENT
  Sex: Female
  Weight: 126.98 kg

DRUGS (4)
  1. DEPAKOTE [Concomitant]
     Indication: BIPOLAR DISORDER
     Dosage: UNK
  2. DEPAKOTE [Concomitant]
     Indication: MOOD ALTERED
  3. ZOLOFT [Suspect]
     Indication: DEPRESSION
     Dosage: UNK, 1X/DAY
     Route: 048
  4. IRON [Concomitant]
     Indication: ANAEMIA
     Dosage: UNK

REACTIONS (4)
  - ACCIDENT [None]
  - OSTEOARTHRITIS [None]
  - ANAEMIA [None]
  - FIBROMYALGIA [None]
